FAERS Safety Report 8435564-4 (Version None)
Quarter: 2012Q2

REPORT INFORMATION
  Report Type: 
  Country: None (occurrence: None)
  Receive Date: 20120614
  Receipt Date: 20120531
  Transmission Date: 20120825
  Serious: Yes (Other)
  Sender: FDA-Public Use
  Company Number: US-JNJFOC-20120601020

PATIENT
  Sex: Male
  Weight: 101.15 kg

DRUGS (7)
  1. PLAVIX [Concomitant]
     Indication: BLOOD CHOLESTEROL
     Route: 048
     Dates: start: 20010101
  2. REMICADE [Suspect]
     Indication: RHEUMATOID ARTHRITIS
     Route: 042
     Dates: start: 20111214
  3. SIMPONI [Suspect]
     Indication: RHEUMATOID ARTHRITIS
     Route: 058
     Dates: end: 20110101
  4. ZETIA [Concomitant]
     Route: 048
     Dates: start: 20010101
  5. ZOCOR [Concomitant]
     Route: 048
     Dates: start: 20010101
  6. METHOTREXATE [Suspect]
     Indication: RHEUMATOID ARTHRITIS
     Dosage: 10 PILLS PER WEEK
     Route: 048
     Dates: end: 20120502
  7. UNKNOWN MEDICATION [Concomitant]
     Route: 065

REACTIONS (5)
  - NEUROPATHY PERIPHERAL [None]
  - GOUT [None]
  - TYPE 2 DIABETES MELLITUS [None]
  - PHOTOSENSITIVITY REACTION [None]
  - RASH MACULAR [None]
